FAERS Safety Report 8154274 (Version 1)
Quarter: 2020Q3

REPORT INFORMATION
  Report Type: Report from Study
  Country: US (occurrence: US)
  Receive Date: 20110923
  Receipt Date: 20110923
  Transmission Date: 20201104
  Serious: Yes (Hospitalization)
  Sender: FDA-Public Use
  Company Number: US-JNJFOC-20070600645

PATIENT
  Age: 57 Year
  Sex: Male
  Weight: 71.8 kg

DRUGS (17)
  1. GOLIMUMAB [Suspect]
     Active Substance: GOLIMUMAB
     Dosage: WEEK 20
     Route: 058
     Dates: start: 20061218
  2. PLACEBO [Suspect]
     Active Substance: UNSPECIFIED INGREDIENT
     Dosage: WEEK 0
     Route: 058
     Dates: start: 20060726
  3. CELEBREX [Concomitant]
     Active Substance: CELECOXIB
     Route: 048
     Dates: start: 2001
  4. GOLIMUMAB [Suspect]
     Active Substance: GOLIMUMAB
     Dosage: WEEK 40
     Route: 058
     Dates: start: 20070503
  5. GOLIMUMAB [Suspect]
     Active Substance: GOLIMUMAB
     Indication: ANKYLOSING SPONDYLITIS
     Dosage: WEEK 16
     Route: 058
     Dates: start: 20061128
  6. PLACEBO [Suspect]
     Active Substance: UNSPECIFIED INGREDIENT
     Dosage: WEEK 8
     Route: 058
     Dates: start: 20060928
  7. HYDROCHLOROTHIAZIDE. [Concomitant]
     Active Substance: HYDROCHLOROTHIAZIDE
     Route: 048
     Dates: start: 1996
  8. GOLIMUMAB [Suspect]
     Active Substance: GOLIMUMAB
     Dosage: WEEK 32
     Route: 058
     Dates: start: 20070308
  9. AZULFIDINE [Concomitant]
     Active Substance: SULFASALAZINE
     Dosage: STARTED PRIOR TO STUDY
     Route: 048
     Dates: start: 2001
  10. GOLIMUMAB [Suspect]
     Active Substance: GOLIMUMAB
     Dosage: WEEK 44
     Route: 058
     Dates: start: 20070531
  11. PLACEBO [Suspect]
     Active Substance: UNSPECIFIED INGREDIENT
     Dosage: WEEK 4
     Route: 058
     Dates: start: 20060823
  12. GOLIMUMAB [Suspect]
     Active Substance: GOLIMUMAB
     Dosage: WEEK 36
     Route: 058
     Dates: start: 20070405
  13. GOLIMUMAB [Suspect]
     Active Substance: GOLIMUMAB
     Dosage: WEEK 28
     Route: 058
     Dates: start: 20070208
  14. PLACEBO [Suspect]
     Active Substance: UNSPECIFIED INGREDIENT
     Indication: ANKYLOSING SPONDYLITIS
     Dosage: WEEK 12
     Route: 058
     Dates: start: 20061019
  15. GOLIMUMAB [Suspect]
     Active Substance: GOLIMUMAB
     Dosage: WEEK 24
     Route: 058
     Dates: start: 20070111
  16. GOLIMUMAB [Suspect]
     Active Substance: GOLIMUMAB
     Dosage: WEEK 48
     Route: 058
     Dates: start: 20070627
  17. ZESTRIL [Concomitant]
     Active Substance: LISINOPRIL
     Route: 048
     Dates: start: 1996

REACTIONS (2)
  - Lower gastrointestinal haemorrhage [Recovered/Resolved]
  - Abdominal pain [Recovered/Resolved]

NARRATIVE: CASE EVENT DATE: 20070512
